FAERS Safety Report 6635673-6 (Version None)
Quarter: 2010Q1

REPORT INFORMATION
  Report Type: 
  Country: None (occurrence: None)
  Receive Date: 20100312
  Receipt Date: 20100312
  Transmission Date: 20100710
  Serious: Yes (Hospitalization)
  Sender: FDA-Public Use
  Company Number: None

PATIENT
  Sex: Male
  Weight: 80.9 kg

DRUGS (4)
  1. CETUXIMAB 50 MG BRISTOL-MYERS SQUIBB COMPANY [Suspect]
     Indication: BLADDER CANCER
     Dosage: 400 MG/M2 1ST INFUS IV 250 MG/M2 WEEKLY
     Route: 042
     Dates: start: 20091211, end: 20100202
  2. PACLITAXEL [Suspect]
     Indication: BLADDER CANCER
     Dosage: 80 -70 -60MG/M2 WEEKLY IV
     Route: 042
     Dates: start: 20091211, end: 20100202
  3. BENADRYL [Concomitant]
  4. DEXAMETHASONE [Concomitant]

REACTIONS (4)
  - MALIGNANT NEOPLASM PROGRESSION [None]
  - METASTATIC CARCINOMA OF THE BLADDER [None]
  - PYREXIA [None]
  - URINARY TRACT INFECTION [None]
